FAERS Safety Report 5291686-0 (Version None)
Quarter: 2007Q2

REPORT INFORMATION
  Report Type: 
  Country: None (occurrence: None)
  Receive Date: 20070410
  Receipt Date: 20070329
  Transmission Date: 20071010
  Serious: Yes (Other)
  Sender: FDA-Public Use
  Company Number: PHBS2007BR05683

PATIENT
  Age: 7 Year
  Sex: Female
  Weight: 23 kg

DRUGS (2)
  1. TEGRETOL [Suspect]
     Indication: AUTISM
     Route: 048
  2. NEULEPTIL [Concomitant]
     Indication: AUTISM
     Dosage: 15 DROPS IN MORNING AND 20 DROPS AT NIGHT
     Route: 048

REACTIONS (3)
  - BITE [None]
  - SCRATCH [None]
  - SELF MUTILATION [None]
